FAERS Safety Report 9729958 (Version 1)
Quarter: 2013Q4

REPORT INFORMATION
  Report Type: Spontaneous
  Country: JP (occurrence: None)
  Receive Date: 20131203
  Receipt Date: 20131203
  Transmission Date: 20140711
  Serious: Yes (Other)
  Sender: FDA-Public Use
  Company Number: SYM-2013-13467

PATIENT
  Age: 47 Year
  Sex: Male

DRUGS (3)
  1. FLUOROURACIL (FLUOROURACIL) (FLUOROURACIL) [Suspect]
     Indication: RECTAL CANCER
  2. OXALIPLATIN (OXALIPLATIN) (OXALIPLATIN) [Suspect]
     Indication: RECTAL CANCER
  3. FOLINIC ACID (FOLINIC ACID) (FOLINIC ACID) [Suspect]
     Indication: RECTAL CANCER

REACTIONS (1)
  - Drug-induced liver injury [None]
